FAERS Safety Report 12284983 (Version 4)
Quarter: 2016Q2

REPORT INFORMATION
  Report Type: Spontaneous
  Country: JP (occurrence: JP)
  Receive Date: 20160420
  Receipt Date: 20160527
  Transmission Date: 20160815
  Serious: Yes (Hospitalization)
  Sender: FDA-Public Use
  Company Number: US-ASTRAZENECA-2016SE41226

PATIENT
  Age: 352 Day
  Sex: Female
  Weight: 8 kg

DRUGS (1)
  1. SYNAGIS [Suspect]
     Active Substance: PALIVIZUMAB
     Indication: PREMATURE BABY
     Dosage: 100.0MG UNKNOWN
     Route: 030
     Dates: start: 20160325, end: 20160325

REACTIONS (3)
  - Febrile convulsion [Recovered/Resolved]
  - Pharyngitis [Recovered/Resolved]
  - Urticaria [Unknown]

NARRATIVE: CASE EVENT DATE: 20160325
